FAERS Safety Report 8054947-8 (Version None)
Quarter: 2012Q1

REPORT INFORMATION
  Report Type: 
  Country: None (occurrence: None)
  Receive Date: 20120119
  Receipt Date: 20120110
  Transmission Date: 20120608
  Serious: Yes (Other)
  Sender: FDA-Public Use
  Company Number: US-ELI_LILLY_AND_COMPANY-US201110007930

PATIENT
  Sex: Female

DRUGS (6)
  1. LITHIUM CARBONATE [Concomitant]
     Dosage: 750 DF, UNK
  2. NAPROSYN                                /USA/ [Concomitant]
  3. SYNTHROID [Concomitant]
  4. ENBREL [Concomitant]
  5. TYLENOL W/ CODEINE NO. 4 [Concomitant]
     Dosage: 2 DF, QD
  6. CYMBALTA [Suspect]
     Indication: DEPRESSION
     Dosage: 60 MG, QD
     Route: 048
     Dates: start: 20110804, end: 20110927

REACTIONS (2)
  - ASPARTATE AMINOTRANSFERASE INCREASED [None]
  - ALANINE AMINOTRANSFERASE INCREASED [None]
